FAERS Safety Report 7788464-7 (Version None)
Quarter: 2011Q3

REPORT INFORMATION
  Report Type: 
  Country: None (occurrence: None)
  Receive Date: 20110927
  Receipt Date: 20110912
  Transmission Date: 20111222
  Serious: Yes (Other)
  Sender: FDA-Public Use
  Company Number: 2011SP044536

PATIENT
  Sex: Male

DRUGS (1)
  1. LOTRIMIN AF [Suspect]
     Indication: PRODUCT USED FOR UNKNOWN INDICATION
     Dosage: TOP
     Route: 061
     Dates: start: 20110907

REACTIONS (4)
  - THINKING ABNORMAL [None]
  - DRUG INEFFECTIVE [None]
  - FEELING ABNORMAL [None]
  - DYSPNOEA [None]
